FAERS Safety Report 23121952 (Version 5)
Quarter: 2024Q2

REPORT INFORMATION
  Report Type: Report from Study
  Country: US (occurrence: US)
  Receive Date: 20231030
  Receipt Date: 20240604
  Transmission Date: 20240716
  Serious: Yes (Death)
  Sender: FDA-Public Use
  Company Number: US-ABBVIE-5472842

PATIENT
  Sex: Male

DRUGS (2)
  1. HUMIRA [Suspect]
     Active Substance: ADALIMUMAB
     Indication: Psoriasis
     Dosage: CITRATE FREE FORM STRENGTH: 40 MILLIGRAM
     Route: 058
  2. HUMIRA [Suspect]
     Active Substance: ADALIMUMAB
     Dosage: CITRATE FREE FORM STRENGTH: 40 MILLIGRAM
     Route: 058
     Dates: start: 20211011, end: 20211011

REACTIONS (4)
  - Cardiac failure congestive [Fatal]
  - Renal failure [Fatal]
  - Cerebral disorder [Fatal]
  - Hepatic failure [Fatal]
